FAERS Safety Report 9675473 (Version 2)
Quarter: 2013Q4

REPORT INFORMATION
  Report Type: Spontaneous
  Country: BE (occurrence: BE)
  Receive Date: 20131107
  Receipt Date: 20131203
  Transmission Date: 20140711
  Serious: Yes (Other)
  Sender: FDA-Public Use
  Company Number: BE-JNJFOC-20131101733

PATIENT
  Age: 64 Year
  Sex: Female

DRUGS (10)
  1. XARELTO [Suspect]
     Indication: EMBOLISM VENOUS
     Route: 048
     Dates: start: 20131119
  2. XARELTO [Suspect]
     Indication: EMBOLISM VENOUS
     Route: 048
     Dates: start: 20131016
  3. XARELTO [Suspect]
     Indication: DEEP VEIN THROMBOSIS
     Route: 048
     Dates: start: 20131119
  4. XARELTO [Suspect]
     Indication: DEEP VEIN THROMBOSIS
     Route: 048
     Dates: start: 20131016
  5. L-THYROXINE [Concomitant]
     Route: 065
  6. INSULIN [Concomitant]
     Route: 065
  7. EMCONCOR [Concomitant]
     Route: 065
  8. LYRICA [Concomitant]
     Route: 065
  9. NOVONORM [Concomitant]
     Route: 065
  10. SIMVASTATINE [Concomitant]
     Route: 065

REACTIONS (6)
  - Deep vein thrombosis [Recovered/Resolved]
  - Vaginal haemorrhage [Recovered/Resolved]
  - Medical device site reaction [Unknown]
  - Epistaxis [Recovered/Resolved]
  - Epistaxis [Recovered/Resolved]
  - Headache [Unknown]
